FAERS Safety Report 5964220-7 (Version None)
Quarter: 2008Q4

REPORT INFORMATION
  Report Type: 
  Country: None (occurrence: None)
  Receive Date: 20081119
  Receipt Date: 20080926
  Transmission Date: 20090506
  Serious: No
  Sender: FDA-Public Use
  Company Number: WAES 0809USA04618

PATIENT
  Sex: Male

DRUGS (2)
  1. JANUVIA [Suspect]
     Indication: GLYCOSYLATED HAEMOGLOBIN
     Dosage: 100 MG/DAILY/PO
     Route: 048
  2. BYETTA [Concomitant]

REACTIONS (2)
  - EATING DISORDER [None]
  - WEIGHT DECREASED [None]
